FAERS Safety Report 5700747-0 (Version None)
Quarter: 2008Q2

REPORT INFORMATION
  Report Type: 
  Country: None (occurrence: None)
  Receive Date: 20080410
  Receipt Date: 20080222
  Transmission Date: 20081010
  Serious: No
  Sender: FDA-Public Use
  Company Number: A0711358A

PATIENT
  Age: 55 Year
  Sex: Female

DRUGS (3)
  1. TYKERB [Suspect]
     Dosage: 5TAB PER DAY
     Route: 048
     Dates: start: 20080212
  2. ACTONEL [Concomitant]
  3. CRESTOR [Concomitant]

REACTIONS (1)
  - ORAL HERPES [None]
